FAERS Safety Report 17191741 (Version 1)
Quarter: 2020Q1

REPORT INFORMATION
  Report Type: Spontaneous
  Country: US (occurrence: US)
  Receive Date: 20191222
  Receipt Date: 20191222
  Transmission Date: 20200409
  Serious: Yes (Hospitalization, Disabling)
  Sender: FDA-Public Use
  Company Number: None

PATIENT
  Age: 28 Year
  Sex: Male
  Weight: 85.5 kg

DRUGS (10)
  1. LEXAPRO [Concomitant]
     Active Substance: ESCITALOPRAM OXALATE
  2. FLONASE [Concomitant]
     Active Substance: FLUTICASONE PROPIONATE
  3. DEPAKOTE EXTENDED RELEASE [Concomitant]
  4. CLONAZEPAM. [Concomitant]
     Active Substance: CLONAZEPAM
  5. LAMICTAL [Suspect]
     Active Substance: LAMOTRIGINE
  6. CENTRUM VITAMIN ONE A DAY [Concomitant]
  7. GEODON [Suspect]
     Active Substance: ZIPRASIDONE HYDROCHLORIDE\ZIPRASIDONE MESYLATE
     Route: 048
  8. MIRTAZAPINE. [Concomitant]
     Active Substance: MIRTAZAPINE
  9. ZYRTEC [Concomitant]
     Active Substance: CETIRIZINE HYDROCHLORIDE
  10. ZYPREXA [Suspect]
     Active Substance: OLANZAPINE
     Route: 048
     Dates: start: 20170202, end: 20181005

REACTIONS (15)
  - Crying [None]
  - Brain injury [None]
  - Anxiety [None]
  - Therapy cessation [None]
  - Insomnia [None]
  - Head discomfort [None]
  - Dysarthria [None]
  - Headache [None]
  - Tremor [None]
  - Depressed mood [None]
  - Palpitations [None]
  - Amnesia [None]
  - Confusional state [None]
  - Tachyphrenia [None]
  - Panic attack [None]

NARRATIVE: CASE EVENT DATE: 20181107
